APPROVED DRUG PRODUCT: ROPINIROLE HYDROCHLORIDE
Active Ingredient: ROPINIROLE HYDROCHLORIDE
Strength: EQ 2MG BASE
Dosage Form/Route: TABLET;ORAL
Application: A079165 | Product #004 | TE Code: AB
Applicant: MLV PHARMA LLC
Approved: Feb 7, 2012 | RLD: No | RS: No | Type: RX